FAERS Safety Report 7219538-7 (Version None)
Quarter: 2011Q1

REPORT INFORMATION
  Report Type: 
  Country: None (occurrence: None)
  Receive Date: 20110111
  Receipt Date: 20101228
  Transmission Date: 20110831
  Serious: Yes (Hospitalization)
  Sender: FDA-Public Use
  Company Number: NL-MEDIMMUNE-MEDI-0012147

PATIENT
  Sex: Female
  Weight: 4.2 kg

DRUGS (2)
  1. SYNAGIS [Suspect]
     Route: 030
     Dates: start: 20101228, end: 20101228
  2. SYNAGIS [Suspect]
     Route: 030
     Dates: start: 20101130, end: 20101130

REACTIONS (3)
  - PALLOR [None]
  - ALTERED STATE OF CONSCIOUSNESS [None]
  - RESPIRATORY SYNCYTIAL VIRUS INFECTION [None]
